FAERS Safety Report 5675224-6 (Version None)
Quarter: 2008Q2

REPORT INFORMATION
  Report Type: 
  Country: None (occurrence: None)
  Receive Date: 20080307
  Receipt Date: 20070802
  Transmission Date: 20081010
  Serious: Yes (Other)
  Sender: FDA-Public Use
  Company Number: T200700867

PATIENT
  Age: 22 Year
  Sex: Female

DRUGS (1)
  1. OPTIRAY(IOVERSOL0 SOLUTION FOR INJECTION, 320 [Suspect]
     Indication: SCAN BRAIN
     Dosage: 100 MI, SINGLE, INTRAVENOUS
     Route: 042
     Dates: start: 20070802, end: 20070802

REACTIONS (1)
  - THROAT TIGHTNESS [None]
